FAERS Safety Report 14609889 (Version 5)
Quarter: 2018Q2

REPORT INFORMATION
  Report Type: Report from Study
  Country: DE (occurrence: DE)
  Receive Date: 20180307
  Receipt Date: 20180618
  Transmission Date: 20180711
  Serious: Yes (Other)
  Sender: FDA-Public Use
  Company Number: DE-TEVA-2017-DE-836528

PATIENT
  Age: 71 Year
  Sex: Male
  Weight: 87 kg

DRUGS (39)
  1. FLUOROURACIL. [Suspect]
     Active Substance: FLUOROURACIL
     Dosage: 2X/WEEK; IV BOLUS
     Route: 040
     Dates: start: 20160411, end: 20160411
  2. FLUOROURACIL. [Suspect]
     Active Substance: FLUOROURACIL
     Dosage: 2X/WEEK; IV BOLUS
     Route: 040
     Dates: start: 20160314, end: 20160314
  3. FLUOROURACIL. [Suspect]
     Active Substance: FLUOROURACIL
     Dosage: 2X/WEEK; IV BOLUS
     Route: 040
     Dates: start: 20160314, end: 20160314
  4. FLUOROURACIL. [Suspect]
     Active Substance: FLUOROURACIL
     Route: 042
     Dates: start: 20160613
  5. PEGYLATED LIPOSOMAL IRINOTECAN [Suspect]
     Active Substance: IRINOTECAN HYDROCHLORIDE
     Dosage: BIW
     Route: 042
     Dates: start: 20160208, end: 20160208
  6. FOLINIC ACID [Concomitant]
     Active Substance: LEUCOVORIN
     Route: 042
     Dates: start: 20160425, end: 20160425
  7. VALSARTAN. [Concomitant]
     Active Substance: VALSARTAN
     Indication: HYPERTENSION
     Dosage: 80 MILLIGRAM DAILY; QD
     Route: 048
  8. FLUOROURACIL. [Suspect]
     Active Substance: FLUOROURACIL
     Dosage: 2X/WEEK; IV BOLUS
     Route: 040
     Dates: start: 20160430, end: 20160430
  9. FOLINIC ACID [Concomitant]
     Active Substance: LEUCOVORIN
     Indication: PRODUCT USED FOR UNKNOWN INDICATION
     Route: 042
     Dates: start: 20160613, end: 20160613
  10. FOLINIC ACID [Concomitant]
     Active Substance: LEUCOVORIN
     Route: 042
     Dates: start: 20160711, end: 20160711
  11. FLUOROURACIL. [Suspect]
     Active Substance: FLUOROURACIL
     Dosage: DOSAGES BETWEEN 600 MG AND 808 MG
     Route: 040
     Dates: start: 20160208, end: 20160208
  12. FLUOROURACIL. [Suspect]
     Active Substance: FLUOROURACIL
     Dosage: 2X/WEEK; IV BOLUS
     Route: 040
     Dates: start: 20160425, end: 20160425
  13. PEGYLATED LIPOSOMAL IRINOTECAN [Suspect]
     Active Substance: IRINOTECAN HYDROCHLORIDE
     Dosage: BIW
     Route: 042
     Dates: start: 20160314, end: 20160314
  14. PEGYLATED LIPOSOMAL IRINOTECAN [Suspect]
     Active Substance: IRINOTECAN HYDROCHLORIDE
     Route: 042
     Dates: start: 20160330, end: 20160330
  15. AVASTIN [Suspect]
     Active Substance: BEVACIZUMAB
     Indication: PRODUCT USED FOR UNKNOWN INDICATION
     Route: 042
     Dates: start: 20160224
  16. FOLINIC ACID [Concomitant]
     Active Substance: LEUCOVORIN
     Route: 042
     Dates: start: 20160314, end: 20160314
  17. FLUOROURACIL. [Suspect]
     Active Substance: FLUOROURACIL
     Indication: COLORECTAL CANCER
     Dosage: 2X/WEEK; IV BOLUS
     Route: 040
     Dates: start: 20160613, end: 20160613
  18. PEGYLATED LIPOSOMAL IRINOTECAN [Suspect]
     Active Substance: IRINOTECAN HYDROCHLORIDE
     Indication: COLORECTAL CANCER
     Dosage: BIW
     Route: 042
     Dates: start: 20160613, end: 20160613
  19. PEGYLATED LIPOSOMAL IRINOTECAN [Suspect]
     Active Substance: IRINOTECAN HYDROCHLORIDE
     Indication: OFF LABEL USE
     Dosage: BIW
     Route: 042
     Dates: start: 20160711, end: 20160711
  20. PEGYLATED LIPOSOMAL IRINOTECAN [Suspect]
     Active Substance: IRINOTECAN HYDROCHLORIDE
     Dosage: BIW
     Route: 042
     Dates: start: 20160314, end: 20160314
  21. FLUOROURACIL. [Suspect]
     Active Substance: FLUOROURACIL
     Dosage: 2X/WEEK; IV BOLUS
     Route: 040
     Dates: start: 20160711, end: 20160711
  22. PEGYLATED LIPOSOMAL IRINOTECAN [Suspect]
     Active Substance: IRINOTECAN HYDROCHLORIDE
     Dosage: BIW
     Route: 042
     Dates: start: 20160411, end: 20160411
  23. AVASTIN [Suspect]
     Active Substance: BEVACIZUMAB
     Indication: COLORECTAL CANCER
     Route: 042
     Dates: start: 20160615, end: 20160615
  24. FOLINIC ACID [Concomitant]
     Active Substance: LEUCOVORIN
     Indication: COLORECTAL CANCER
     Route: 042
     Dates: start: 20160411, end: 20160411
  25. FOLINIC ACID [Concomitant]
     Active Substance: LEUCOVORIN
     Route: 042
     Dates: start: 20160627, end: 20160627
  26. FOLINIC ACID [Concomitant]
     Active Substance: LEUCOVORIN
     Route: 042
     Dates: start: 20160208, end: 20160208
  27. FOLINIC ACID [Concomitant]
     Active Substance: LEUCOVORIN
     Route: 042
     Dates: start: 20160330, end: 20160330
  28. FOLINIC ACID [Concomitant]
     Active Substance: LEUCOVORIN
     Dates: start: 20160208, end: 20160711
  29. OXALIPLATIN. [Concomitant]
     Active Substance: OXALIPLATIN
     Indication: PRODUCT USED FOR UNKNOWN INDICATION
  30. FLUOROURACIL. [Suspect]
     Active Substance: FLUOROURACIL
     Dosage: 2X/WEEK; IV BOLUS
     Route: 040
     Dates: start: 20160627, end: 20160627
  31. FLUOROURACIL. [Suspect]
     Active Substance: FLUOROURACIL
     Dosage: 606 MILLIGRAM DAILY; 606 MG, UNK
     Route: 040
     Dates: start: 20160330, end: 20160330
  32. PEGYLATED LIPOSOMAL IRINOTECAN [Suspect]
     Active Substance: IRINOTECAN HYDROCHLORIDE
     Dosage: 270 MILLIGRAM DAILY; BIW
     Route: 042
     Dates: start: 20160411, end: 20160411
  33. PEGYLATED LIPOSOMAL IRINOTECAN [Suspect]
     Active Substance: IRINOTECAN HYDROCHLORIDE
     Dosage: BIW
     Route: 042
     Dates: start: 20160222, end: 20160222
  34. FOLINIC ACID [Concomitant]
     Active Substance: LEUCOVORIN
     Route: 042
     Dates: start: 20160222, end: 20160222
  35. VALSARTAN. [Concomitant]
     Active Substance: VALSARTAN
     Indication: PRODUCT USED FOR UNKNOWN INDICATION
  36. FLUOROURACIL. [Suspect]
     Active Substance: FLUOROURACIL
     Dosage: 2X/WEEK; IV BOLUS
     Route: 040
     Dates: start: 20160222, end: 20160222
  37. PEGYLATED LIPOSOMAL IRINOTECAN [Suspect]
     Active Substance: IRINOTECAN HYDROCHLORIDE
     Dosage: BIW
     Route: 042
     Dates: start: 20160627, end: 20160627
  38. PEGYLATED LIPOSOMAL IRINOTECAN [Suspect]
     Active Substance: IRINOTECAN HYDROCHLORIDE
     Dosage: 270 MILLIGRAM DAILY;
     Route: 042
     Dates: start: 20160425, end: 20160425
  39. OXALIPLATIN. [Concomitant]
     Active Substance: OXALIPLATIN
     Indication: COLORECTAL CANCER
     Dosage: 2X/WEEK
     Route: 042
     Dates: start: 20160919, end: 20160919

REACTIONS (4)
  - Epistaxis [Recovered/Resolved]
  - Neutropenia [Recovered/Resolved]
  - Inappropriate schedule of drug administration [Unknown]
  - Off label use [Unknown]

NARRATIVE: CASE EVENT DATE: 20160307
